FAERS Safety Report 24564873 (Version 1)
Quarter: 2024Q4

REPORT INFORMATION
  Report Type: Spontaneous
  Country: FR (occurrence: FR)
  Receive Date: 20241030
  Receipt Date: 20241030
  Transmission Date: 20250115
  Serious: Yes (Disabling)
  Sender: BAXTER
  Company Number: None

PATIENT
  Age: 44 Year
  Sex: Male
  Weight: 125 kg

DRUGS (3)
  1. PROPOFOL [Suspect]
     Active Substance: PROPOFOL
     Indication: General anaesthesia
     Dosage: DOSAGE TEXT: 300 MG/H, PHARMACEUTICAL FORM (DOSAGE FORM): 1 FP
     Route: 042
     Dates: start: 20231208, end: 20231208
  2. SUFENTANIL [Suspect]
     Active Substance: SUFENTANIL
     Indication: General anaesthesia
     Dosage: DOSAGE TEXT: 15 ?G/H
     Route: 042
     Dates: start: 20231208, end: 20231208
  3. TRACRIUM [Concomitant]
     Active Substance: ATRACURIUM BESYLATE
     Indication: Product used for unknown indication
     Dosage: DOSAGE TEXT: DOSE UNKNOWN
     Route: 042

REACTIONS (4)
  - Drug ineffective [Recovered/Resolved with Sequelae]
  - Underdose [Recovered/Resolved with Sequelae]
  - Drug monitoring procedure incorrectly performed [Recovered/Resolved with Sequelae]
  - Post-traumatic stress disorder [Not Recovered/Not Resolved]

NARRATIVE: CASE EVENT DATE: 20231208
